FAERS Safety Report 9476391 (Version 1)
Quarter: 2013Q3

REPORT INFORMATION
  Report Type: Spontaneous
  Country: US (occurrence: None)
  Receive Date: 20130823
  Receipt Date: 20130823
  Transmission Date: 20140515
  Serious: Yes (Hospitalization)
  Sender: FDA-Public Use
  Company Number: None

PATIENT
  Age: 59 Year
  Sex: Male
  Weight: 84.6 kg

DRUGS (16)
  1. CISPLATIN [Suspect]
  2. ACETAMINOPHEN [Concomitant]
  3. BMX [Concomitant]
  4. CEFEPIME HCL [Concomitant]
  5. ENOXAPARIN [Concomitant]
  6. FAMOTIDINE [Concomitant]
  7. FENTANYL [Concomitant]
  8. FLUTICASONE [Concomitant]
  9. HYDROMORPHONE [Concomitant]
  10. METRONIDAZOLE [Concomitant]
  11. ONDANSETRON [Concomitant]
  12. OXYCODONE [Concomitant]
  13. PROMETHAZINE [Concomitant]
  14. SENNOSIDES [Concomitant]
  15. SIMVASTATIN [Concomitant]
  16. SODIUM CHLORIDE IV [Concomitant]

REACTIONS (3)
  - Pyrexia [None]
  - Leukopenia [None]
  - Neutropenia [None]
